FAERS Safety Report 16917981 (Version 4)
Quarter: 2020Q1

REPORT INFORMATION
  Report Type: Spontaneous
  Country: US (occurrence: US)
  Receive Date: 20191015
  Receipt Date: 20200325
  Transmission Date: 20200409
  Serious: No
  Sender: FDA-Public Use
  Company Number: US-BRISTOL-MYERS SQUIBB COMPANY-BMS-2019-099035

PATIENT
  Sex: Female

DRUGS (1)
  1. ORENCIA [Suspect]
     Active Substance: ABATACEPT
     Indication: PRODUCT USED FOR UNKNOWN INDICATION
     Dosage: 125 MG/ML QWK
     Route: 058

REACTIONS (7)
  - Memory impairment [Unknown]
  - Walking aid user [Unknown]
  - Speech disorder [Unknown]
  - Amnesia [Unknown]
  - Lymphadenopathy [Unknown]
  - Disease recurrence [Unknown]
  - Gait disturbance [Unknown]
